FAERS Safety Report 8798602 (Version 2)
Quarter: 2012Q4

REPORT INFORMATION
  Report Type: Report from Study
  Country: US (occurrence: US)
  Receive Date: 20120920
  Receipt Date: 20121011
  Transmission Date: 20130627
  Serious: Yes (Hospitalization, Other)
  Sender: FDA-Public Use
  Company Number: US-ABBOTT-12P-163-0979708-00

PATIENT
  Age: 57 None
  Sex: Female
  Weight: 70.37 kg

DRUGS (8)
  1. HUMIRA [Suspect]
     Indication: ARTHRITIS
     Dates: start: 20070107
  2. HUMIRA [Suspect]
     Indication: CROHN^S DISEASE
  3. FOSINOPRIL [Suspect]
     Indication: HYPERTENSION
     Dates: end: 2010
  4. SULFASALAZINE [Suspect]
  5. ARAVA [Suspect]
     Dates: end: 201110
  6. NORVASC [Concomitant]
     Indication: HYPERTENSION
     Dosage: 5mg in AM and 2.5mg in PM
  7. NEXIUM [Concomitant]
     Indication: GASTROOESOPHAGEAL REFLUX DISEASE
  8. METHYLDOPA [Concomitant]
     Indication: HYPERTENSION
     Dates: start: 2010

REACTIONS (10)
  - Renal failure [Not Recovered/Not Resolved]
  - Bone marrow failure [Unknown]
  - Injection site pain [Not Recovered/Not Resolved]
  - Injection site bruising [Recovering/Resolving]
  - Arthralgia [Recovered/Resolved]
  - Drug ineffective [Recovered/Resolved]
  - Weight decreased [Unknown]
  - Swelling face [Unknown]
  - Back pain [Unknown]
  - Injection site bruising [Unknown]
